FAERS Safety Report 4607498-4 (Version None)
Quarter: 2005Q1

REPORT INFORMATION
  Report Type: 
  Country: None (occurrence: None)
  Receive Date: 20050314
  Receipt Date: 20050302
  Transmission Date: 20050727
  Serious: Yes (Hospitalization)
  Sender: FDA-Public Use
  Company Number: GB-BRISTOL-MYERS SQUIBB COMPANY-12893533

PATIENT
  Age: 34 Year
  Sex: Female

DRUGS (3)
  1. CETUXIMAB [Suspect]
     Indication: LUNG CARCINOMA CELL TYPE UNSPECIFIED STAGE 0
     Dosage: 21-FEB-05 (MOST RECENT INFUSION). 2ND INFUSION THUS FAR
     Route: 041
     Dates: start: 20050214
  2. CISPLATIN [Suspect]
     Indication: LUNG CARCINOMA CELL TYPE UNSPECIFIED STAGE 0
     Dosage: 14-FEB-05 (MOST RECENT INFUSION). 1ST INFUSION THUS FAR.
     Dates: start: 20050214
  3. VINORELBINE [Suspect]
     Indication: LUNG CARCINOMA CELL TYPE UNSPECIFIED STAGE 0
     Dosage: 21-FEB-05 (MOST RECENT INFUSION). 2ND INFUSION THUS FAR
     Dates: start: 20050214

REACTIONS (9)
  - BACK PAIN [None]
  - CHEST PAIN [None]
  - COUGH [None]
  - DERMATITIS ACNEIFORM [None]
  - DYSPNOEA [None]
  - FLANK PAIN [None]
  - METASTASES TO LUNG [None]
  - NEUTROPENIC SEPSIS [None]
  - PULMONARY MASS [None]
